FAERS Safety Report 10430134 (Version 4)
Quarter: 2014Q4

REPORT INFORMATION
  Report Type: Report from Study
  Country: JP (occurrence: JP)
  Receive Date: 20140904
  Receipt Date: 20141008
  Transmission Date: 20150528
  Serious: Yes (Hospitalization, Other)
  Sender: FDA-Public Use
  Company Number: PHHY2014JP085886

PATIENT
  Age: 48 Year
  Sex: Female

DRUGS (16)
  1. CLOZARIL [Suspect]
     Active Substance: CLOZAPINE
     Dosage: 575 MG, DAILY
     Route: 048
     Dates: start: 20131108, end: 20131114
  2. SENNOSIDE [Concomitant]
     Active Substance: SENNOSIDES
     Indication: PRODUCT USED FOR UNKNOWN INDICATION
     Dosage: 36 MG, UNK
     Route: 048
     Dates: start: 20130811
  3. MAGNESIUM OXIDE. [Concomitant]
     Active Substance: MAGNESIUM OXIDE
     Indication: PRODUCT USED FOR UNKNOWN INDICATION
     Dosage: 2000 MG, UNK
     Route: 048
     Dates: start: 20130811
  4. BIOFERMIN [Concomitant]
     Active Substance: BACILLUS SUBTILIS\LACTOBACILLUS ACIDOPHILUS\STREPTOCOCCUS FAECAIS
     Indication: PRODUCT USED FOR UNKNOWN INDICATION
     Dosage: UNK
     Route: 065
     Dates: start: 20140821, end: 20140826
  5. CLOZARIL [Suspect]
     Active Substance: CLOZAPINE
     Dosage: 525 MG, DAILY
     Route: 048
     Dates: start: 20131129, end: 20131212
  6. CLOZARIL [Suspect]
     Active Substance: CLOZAPINE
     Dosage: 500 MG, DAILY
     Route: 048
     Dates: start: 20130823, end: 20130919
  7. PURSENIDE [Concomitant]
     Active Substance: SENNOSIDES A AND B
     Indication: PRODUCT USED FOR UNKNOWN INDICATION
     Dosage: 36 MG, UNK
     Route: 048
     Dates: start: 20140802, end: 20140805
  8. CLOZARIL [Suspect]
     Active Substance: CLOZAPINE
     Dosage: 550 MG, DAILY
     Route: 048
     Dates: start: 20131115, end: 20131128
  9. CLOZARIL [Suspect]
     Active Substance: CLOZAPINE
     Dosage: 500 MG, DAILY
     Route: 048
     Dates: start: 20131213, end: 20140313
  10. CLOZARIL [Suspect]
     Active Substance: CLOZAPINE
     Dosage: 450 MG, DAILY
     Route: 048
     Dates: start: 20140314
  11. CLOZARIL [Suspect]
     Active Substance: CLOZAPINE
     Indication: SCHIZOPHRENIA
     Dosage: 450 MG, DAILY
     Dates: start: 20130510, end: 20130822
  12. CLOZARIL [Suspect]
     Active Substance: CLOZAPINE
     Dosage: 550 MG, DAILY
     Route: 048
     Dates: start: 20130920, end: 20131023
  13. CLOZARIL [Suspect]
     Active Substance: CLOZAPINE
     Dosage: 400 MG, DAILY
     Route: 048
     Dates: start: 20140802, end: 20140806
  14. CLOZARIL [Suspect]
     Active Substance: CLOZAPINE
     Dosage: 600 MG, DAILY
     Route: 048
     Dates: start: 20131024, end: 20131107
  15. FLUNITRAZEPAM [Concomitant]
     Active Substance: FLUNITRAZEPAM
     Indication: PRODUCT USED FOR UNKNOWN INDICATION
     Dosage: 2 MG, UNK
     Route: 048
     Dates: start: 20130811
  16. LITHIUM CARBONATE. [Concomitant]
     Active Substance: LITHIUM CARBONATE
     Indication: PRODUCT USED FOR UNKNOWN INDICATION
     Dosage: 400 MG, UNK
     Route: 048
     Dates: start: 20130829

REACTIONS (9)
  - Cough [Recovering/Resolving]
  - Abdominal pain [Recovering/Resolving]
  - Pneumonia [Recovered/Resolved]
  - Pyrexia [Recovering/Resolving]
  - Appendicitis [Recovered/Resolved]
  - Oropharyngeal pain [Recovered/Resolved]
  - White blood cell count decreased [Recovered/Resolved]
  - Lymphocyte count decreased [Unknown]
  - Chills [Recovering/Resolving]

NARRATIVE: CASE EVENT DATE: 20140309
